FAERS Safety Report 25595068 (Version 2)
Quarter: 2025Q3

REPORT INFORMATION
  Report Type: Report from Study
  Country: BR (occurrence: BR)
  Receive Date: 20250723
  Receipt Date: 20250812
  Transmission Date: 20251020
  Serious: Yes (Other)
  Sender: TAKEDA
  Company Number: BR-TAKEDA-2024TUS028094

PATIENT
  Age: 30 Year
  Sex: Female

DRUGS (3)
  1. VEDOLIZUMAB [Suspect]
     Active Substance: VEDOLIZUMAB
     Indication: Colitis ulcerative
  2. MESALAMINE [Suspect]
     Active Substance: MESALAMINE
     Indication: Product used for unknown indication
  3. INFLIXIMAB [Suspect]
     Active Substance: INFLIXIMAB
     Indication: Product used for unknown indication

REACTIONS (6)
  - Colitis ulcerative [Unknown]
  - Drug ineffective [Unknown]
  - Drug specific antibody present [Unknown]
  - Drug level decreased [Unknown]
  - Product availability issue [Unknown]
  - Inappropriate schedule of product administration [Unknown]

NARRATIVE: CASE EVENT DATE: 20240123
